FAERS Safety Report 4576271-8 (Version None)
Quarter: 2005Q1

REPORT INFORMATION
  Report Type: 
  Country: None (occurrence: None)
  Receive Date: 20050207
  Receipt Date: 20050126
  Transmission Date: 20050727
  Serious: Yes (Other)
  Sender: FDA-Public Use
  Company Number: S04-UKI-07885-01

PATIENT
  Sex: Male

DRUGS (1)
  1. CIPRAMIL (CITALOPRAM HYDROBROMIDE) [Suspect]
     Dosage: 20 MG QD PO
     Route: 048

REACTIONS (1)
  - ATRIOVENTRICULAR BLOCK SECOND DEGREE [None]
